FAERS Safety Report 10266586 (Version 2)
Quarter: 2014Q3

REPORT INFORMATION
  Report Type: Spontaneous
  Country: GB (occurrence: GB)
  Receive Date: 20140629
  Receipt Date: 20140711
  Transmission Date: 20150326
  Serious: Yes (Other)
  Sender: FDA-Public Use
  Company Number: PHHY2014GB076612

PATIENT
  Age: 15 Year
  Sex: Male
  Weight: 54 kg

DRUGS (1)
  1. HALOPERIDOL. [Suspect]
     Active Substance: HALOPERIDOL
     Indication: TIC
     Dosage: 1.5 MG, TID
     Route: 048
     Dates: start: 20140103, end: 20140105

REACTIONS (9)
  - Dystonia [Recovered/Resolved]
  - Pyrexia [Unknown]
  - Drug prescribing error [Unknown]
  - Overdose [Unknown]
  - Oculogyric crisis [Recovered/Resolved]
  - Somnolence [Unknown]
  - Body temperature fluctuation [Recovered/Resolved]
  - Drooling [Recovered/Resolved]
  - Hyperhidrosis [Recovered/Resolved]

NARRATIVE: CASE EVENT DATE: 20140103
